FAERS Safety Report 6971559-5 (Version None)
Quarter: 2010Q3

REPORT INFORMATION
  Report Type: 
  Country: None (occurrence: None)
  Receive Date: 20100908
  Receipt Date: 20100902
  Transmission Date: 20110219
  Serious: Yes (Other)
  Sender: FDA-Public Use
  Company Number: JP-PFIZER INC-2010098710

PATIENT
  Age: 36 Year
  Sex: Female
  Weight: 53.6 kg

DRUGS (7)
  1. ZITHROMAC SR [Suspect]
     Indication: COUGH
     Dosage: 2 G, SINGLE
     Dates: start: 20100731, end: 20100731
  2. LASTET [Concomitant]
     Indication: UTERINE CANCER
  3. MUCODYNE [Concomitant]
     Indication: COUGH
     Dosage: 2 DF, 3X/DAY
     Route: 048
     Dates: start: 20100731, end: 20100802
  4. CISDYNE [Concomitant]
     Indication: COUGH
     Dosage: 6 TABLETS
     Dates: start: 20100731, end: 20100802
  5. HOKUNALIN [Concomitant]
     Indication: COUGH
     Dosage: 1 PC., 1X/DAY
     Route: 062
     Dates: start: 20100731, end: 20100802
  6. LIPITOR [Concomitant]
     Indication: HYPERLIPIDAEMIA
     Dosage: 20 MG, 1X/DAY
     Route: 048
     Dates: start: 20091202
  7. HUSCODE [Concomitant]
     Dosage: 2 DF, 3X/DAY
     Route: 048
     Dates: start: 20100731, end: 20100802

REACTIONS (1)
  - RENAL FAILURE ACUTE [None]
